FAERS Safety Report 8224389-0 (Version None)
Quarter: 2012Q1

REPORT INFORMATION
  Report Type: 
  Country: None (occurrence: None)
  Receive Date: 20120320
  Receipt Date: 20120320
  Transmission Date: 20120608
  Serious: Yes (Life-Threatening, Hospitalization)
  Sender: FDA-Public Use
  Company Number: None

PATIENT
  Age: 46 Year
  Sex: Male
  Weight: 161.8 kg

DRUGS (2)
  1. MORPHINE [Suspect]
     Indication: PAIN
     Dosage: 4 MG ONCE IV
     Route: 042
     Dates: start: 20110512, end: 20110512
  2. HYDROMORPHONE HCL [Suspect]
     Indication: PAIN
     Dosage: 2 MG ONCE IV
     Route: 042
     Dates: start: 20110512, end: 20110512

REACTIONS (2)
  - SEDATION [None]
  - RESPIRATORY DEPRESSION [None]
